FAERS Safety Report 13591417 (Version 1)
Quarter: 2017Q2

REPORT INFORMATION
  Report Type: Spontaneous
  Country: AU (occurrence: AU)
  Receive Date: 20170530
  Receipt Date: 20170530
  Transmission Date: 20170830
  Serious: Yes (Other)
  Sender: FDA-Public Use
  Company Number: AU-PFIZER INC-2017231886

PATIENT
  Age: 52 Year
  Sex: Female

DRUGS (13)
  1. THYROXINE [Concomitant]
     Active Substance: LEVOTHYROXINE
     Dosage: UNK
  2. CALCIUM CARBONATE. [Concomitant]
     Active Substance: CALCIUM CARBONATE
     Dosage: UNK
  3. RAMIPRIL. [Concomitant]
     Active Substance: RAMIPRIL
     Dosage: UNK
  4. ROSUVASTATIN. [Concomitant]
     Active Substance: ROSUVASTATIN
     Dosage: UNK
  5. NOVORAPID [Concomitant]
     Active Substance: INSULIN ASPART
     Dosage: UNK
     Route: 058
  6. PREGABALIN. [Suspect]
     Active Substance: PREGABALIN
     Dosage: 75 MG, DAILY (25 MG MANE AND 50 MG NOCTE)
  7. CEPHALEXIN. [Concomitant]
     Active Substance: CEPHALEXIN
     Dosage: UNK
  8. DARBEPOETIN ALFA [Concomitant]
     Active Substance: DARBEPOETIN ALFA
     Dosage: UNK
  9. PREGABALIN. [Suspect]
     Active Substance: PREGABALIN
     Indication: DIABETIC NEUROPATHY
     Dosage: 150 MG, DAILY (50 MG MANE AND 100 MG NOCTE )
  10. FISH OIL [Concomitant]
     Active Substance: FISH OIL
     Dosage: UNK
  11. GLUCOSAMINE [Concomitant]
     Active Substance: GLUCOSAMINE
     Dosage: UNK
  12. SODIUM VALPROATE [Concomitant]
     Active Substance: VALPROATE SODIUM
     Route: 042
  13. INSULIN [Concomitant]
     Active Substance: INSULIN NOS
     Indication: PRERENAL FAILURE
     Route: 042

REACTIONS (5)
  - Somnolence [Unknown]
  - Drug withdrawal convulsions [Recovered/Resolved]
  - Hypotension [Unknown]
  - Overdose [Unknown]
  - Lethargy [Unknown]
